FAERS Safety Report 21817651 (Version 1)
Quarter: 2023Q1

REPORT INFORMATION
  Report Type: Spontaneous
  Country: US (occurrence: None)
  Receive Date: 20230104
  Receipt Date: 20230104
  Transmission Date: 20230417
  Serious: No
  Sender: FDA-Public Use
  Company Number: None

PATIENT
  Age: 41 Year
  Sex: Female
  Weight: 60.75 kg

DRUGS (7)
  1. DEXTROAMPHET SACCHARAT, AMPHET ASPARTATE, DEXTROAMPHET SULFATE AND AMP [Suspect]
     Active Substance: AMPHETAMINE ASPARTATE\AMPHETAMINE SULFATE\DEXTROAMPHETAMINE SACCHARATE\DEXTROAMPHETAMINE SULFATE
     Indication: Attention deficit hyperactivity disorder
     Dosage: OTHER QUANTITY : 1 TABLET(S);?FREQUENCY : TWICE A DAY;?
     Route: 048
     Dates: start: 20221223
  2. AMPHETAMINE SALTS [Concomitant]
  3. Trazodone 50mg [Concomitant]
  4. LIDOCAINE [Concomitant]
     Active Substance: LIDOCAINE
  5. Advil [Concomitant]
  6. TYLENOL [Concomitant]
  7. Tums with gas relief [Concomitant]

REACTIONS (6)
  - Product substitution issue [None]
  - Impaired work ability [None]
  - Gastrointestinal disorder [None]
  - Initial insomnia [None]
  - Anxiety [None]
  - Attention deficit hyperactivity disorder [None]

NARRATIVE: CASE EVENT DATE: 20221225
